FAERS Safety Report 7293186-5 (Version None)
Quarter: 2011Q1

REPORT INFORMATION
  Report Type: 
  Country: None (occurrence: None)
  Receive Date: 20110215
  Receipt Date: 20110209
  Transmission Date: 20110831
  Serious: Yes (Other)
  Sender: FDA-Public Use
  Company Number: US-PFIZER INC-2010100425

PATIENT
  Sex: Male
  Weight: 95.238 kg

DRUGS (6)
  1. PRISTIQ [Suspect]
     Indication: DEPRESSION
     Dosage: 50 MG, DAILY
     Dates: start: 20100101, end: 20100101
  2. GEODON [Suspect]
     Indication: SCHIZOPHRENIA
     Dosage: 160 MG, 1X/DAY
     Route: 048
     Dates: start: 20100701, end: 20100101
  3. PRISTIQ [Suspect]
     Dosage: 50MG TABLET IN HALF PER PHYSICIAN
     Dates: start: 20100101, end: 20100701
  4. ULTRAM [Concomitant]
     Indication: BACK PAIN
     Dosage: UNK
  5. DIOVAN HCT [Concomitant]
     Indication: HYPERTENSION
     Dosage: UNK
  6. GEODON [Suspect]
     Dosage: 80 MG, 1X/DAY
     Dates: start: 20100101

REACTIONS (4)
  - CHOKING [None]
  - SEROTONIN SYNDROME [None]
  - WRONG TECHNIQUE IN DRUG USAGE PROCESS [None]
  - BLOOD URINE PRESENT [None]
